FAERS Safety Report 23564617 (Version 1)
Quarter: 2024Q1

REPORT INFORMATION
  Report Type: Spontaneous
  Country: US (occurrence: None)
  Receive Date: 20240223
  Receipt Date: 20240223
  Transmission Date: 20240409
  Serious: No
  Sender: FDA-Public Use
  Company Number: None

PATIENT
  Age: 81 Year
  Sex: Male

DRUGS (1)
  1. AMBRISENTAN [Suspect]
     Active Substance: AMBRISENTAN
     Indication: Monoclonal gammopathy
     Dosage: FREQUENCY : EVERY OTHER DAY;?
     Route: 048
     Dates: start: 20190826

REACTIONS (7)
  - Cough [None]
  - Neck pain [None]
  - Chest pain [None]
  - Chest X-ray abnormal [None]
  - Pneumonia [None]
  - Lung infiltration [None]
  - Cardiac failure congestive [None]

NARRATIVE: CASE EVENT DATE: 20240217
